FAERS Safety Report 10654832 (Version 1)
Quarter: 2014Q4

REPORT INFORMATION
  Report Type: Spontaneous
  Country: ZA (occurrence: None)
  Receive Date: 20141212
  Receipt Date: 20141212
  Transmission Date: 20150529
  Serious: Yes (Hospitalization, Other)
  Sender: FDA-Public Use
  Company Number: ADR-2014-02312

PATIENT
  Age: 27 Year
  Sex: Male

DRUGS (3)
  1. LIORESAL [Suspect]
     Active Substance: BACLOFEN
     Indication: MUSCLE SPASMS
     Dates: start: 1996
  2. ACLASTA [Suspect]
     Active Substance: ZOLEDRONIC ACID
     Dates: start: 201112
  3. XATRAL [Concomitant]
     Active Substance: ALFUZOSIN

REACTIONS (2)
  - Clavicle fracture [None]
  - Fall [None]

NARRATIVE: CASE EVENT DATE: 20111101
